FAERS Safety Report 5833153-9 (Version None)
Quarter: 2008Q3

REPORT INFORMATION
  Report Type: 
  Country: None (occurrence: None)
  Receive Date: 20080731
  Receipt Date: 20080721
  Transmission Date: 20090109
  Serious: Yes (Hospitalization, Other)
  Sender: FDA-Public Use
  Company Number: 2008PL000115

PATIENT
  Age: 13 Year
  Sex: Female
  Weight: 99 kg

DRUGS (3)
  1. IMURAN [Suspect]
     Indication: CROHN'S DISEASE
     Dosage: PO
     Route: 048
  2. SOLU-MEDROL [Suspect]
     Indication: PREMEDICATION
  3. REMICADE [Suspect]
     Indication: CROHN'S DISEASE
     Dosage: 5 MG/KG;IV;
     Route: 042
     Dates: start: 20061001

REACTIONS (9)
  - APPENDICITIS [None]
  - CONDITION AGGRAVATED [None]
  - ECZEMA [None]
  - PAIN [None]
  - PHOTOSENSITIVITY REACTION [None]
  - RASH [None]
  - SKIN DISORDER [None]
  - SMALL INTESTINAL OBSTRUCTION [None]
  - WEIGHT DECREASED [None]
